FAERS Safety Report 6434812-X (Version None)
Quarter: 2009Q4

REPORT INFORMATION
  Report Type: 
  Country: None (occurrence: None)
  Receive Date: 20091109
  Receipt Date: 20091109
  Transmission Date: 20100525
  Serious: No
  Sender: FDA-Public Use
  Company Number: None

PATIENT
  Sex: Male

DRUGS (2)
  1. PEGASYS [Suspect]
     Indication: HEPATITIS C
     Dosage: 180 MCG/0.5 ML ONCE Q WEEK SQ
     Route: 058
     Dates: start: 20081204, end: 20091005
  2. RIBAVIRIN [Suspect]
     Indication: HEPATITIS C
     Dosage: 600 MG BID PO
     Route: 048
     Dates: start: 20081204, end: 20091005

REACTIONS (2)
  - TOOTH DISORDER [None]
  - TOOTH FRACTURE [None]
